FAERS Safety Report 5601785-9 (Version None)
Quarter: 2008Q1

REPORT INFORMATION
  Report Type: 
  Country: None (occurrence: None)
  Receive Date: 20080124
  Receipt Date: 20080116
  Transmission Date: 20080703
  Serious: Yes (Other)
  Sender: FDA-Public Use
  Company Number: CA-MERCK-0801CAN00156

PATIENT
  Age: 52 Year
  Sex: Female
  Weight: 117 kg

DRUGS (11)
  1. ZETIA [Suspect]
     Route: 048
  2. ROSIGLITAZONE MALEATE [Concomitant]
     Route: 065
  3. AMLODIPINE BESYLATE [Concomitant]
     Route: 065
  4. ALLOPURINOL [Concomitant]
     Route: 065
  5. HYZAAR [Concomitant]
     Route: 048
  6. DICLOFENAC [Concomitant]
     Route: 065
  7. DOXYCYCLINE [Concomitant]
     Route: 065
  8. GLYBURIDE [Concomitant]
     Route: 065
  9. METFORMIN [Concomitant]
     Route: 065
  10. PROPRANOLOL HYDROCHLORIDE [Concomitant]
     Route: 065
  11. ESOMEPRAZOLE MAGNESIUM [Concomitant]
     Route: 065

REACTIONS (3)
  - BLOOD CREATINE PHOSPHOKINASE INCREASED [None]
  - GAIT DISTURBANCE [None]
  - MUSCULAR WEAKNESS [None]
